FAERS Safety Report 8849733 (Version 2)
Quarter: 2012Q4

REPORT INFORMATION
  Report Type: 
  Country: US (occurrence: US)
  Receive Date: 20121019
  Receipt Date: 20121114
  Transmission Date: 20130627
  Serious: Yes (Hospitalization)
  Sender: FDA-Public Use
  Company Number: US-GILEAD-2012-0062311

PATIENT
  Sex: Male

DRUGS (1)
  1. LETAIRIS [Suspect]
     Indication: COR PULMONALE CHRONIC
     Dosage: 5 mg, QD
     Route: 048
     Dates: start: 20120925

REACTIONS (7)
  - Unevaluable event [Unknown]
  - Neurological symptom [Unknown]
  - Insomnia [Unknown]
  - Tachyphrenia [Unknown]
  - Dysarthria [Unknown]
  - Hypercapnia [Unknown]
  - Dyspnoea [Unknown]
